FAERS Safety Report 18267641 (Version 1)
Quarter: 2020Q3

REPORT INFORMATION
  Report Type: Spontaneous
  Country: US (occurrence: US)
  Receive Date: 20200915
  Receipt Date: 20200915
  Transmission Date: 20201103
  Serious: Yes (Life-Threatening, Hospitalization, Other)
  Sender: FDA-Public Use
  Company Number: None

PATIENT
  Age: 15 Year
  Sex: Male
  Weight: 67.5 kg

DRUGS (4)
  1. MIRTAZAPINE. [Suspect]
     Active Substance: MIRTAZAPINE
     Indication: INSOMNIA
     Route: 048
  2. MIRTAZAPINE. [Suspect]
     Active Substance: MIRTAZAPINE
     Indication: OBSESSIVE-COMPULSIVE DISORDER
     Route: 048
  3. MIRTAZAPINE. [Suspect]
     Active Substance: MIRTAZAPINE
     Indication: AUTISM SPECTRUM DISORDER
     Route: 048
  4. MIRTAZAPINE. [Suspect]
     Active Substance: MIRTAZAPINE
     Indication: DEVELOPMENTAL DELAY
     Route: 048

REACTIONS (10)
  - Irritability [None]
  - Drooling [None]
  - Insomnia [None]
  - Allergic reaction to excipient [None]
  - Aggression [None]
  - Paradoxical drug reaction [None]
  - Product substitution issue [None]
  - Asthma [None]
  - Seizure [None]
  - Drug intolerance [None]

NARRATIVE: CASE EVENT DATE: 20120301
